FAERS Safety Report 5474067-6 (Version None)
Quarter: 2007Q4

REPORT INFORMATION
  Report Type: 
  Country: None (occurrence: None)
  Receive Date: 20071002
  Receipt Date: 20070928
  Transmission Date: 20080405
  Serious: Yes (Life-Threatening, Other)
  Sender: FDA-Public Use
  Company Number: PHEH2007US12141

PATIENT
  Age: 91 Year
  Sex: Female

DRUGS (6)
  1. DIOVAN [Suspect]
     Indication: HYPERTENSION
     Dosage: 160 MG, QD
     Route: 048
     Dates: start: 19970101
  2. NORVASC [Concomitant]
     Indication: HYPERTENSION
     Dosage: UNK, UNK
     Route: 048
  3. GLUCOTROL XL [Concomitant]
     Indication: DIABETES MELLITUS
     Dosage: 2.5 MG, QD
     Route: 048
  4. TRIAMTERENE AND HYDROCHLOROTHIAZID ^HARRIS^ [Concomitant]
     Indication: HYPERTENSION
     Dosage: 37.5/25MG, QD
     Route: 048
  5. FOSAMAX [Concomitant]
     Indication: OSTEOPOROSIS
     Dosage: 70 MG, QW
     Route: 048
  6. CELEBREX [Concomitant]
     Indication: ARTHRITIS
     Dosage: 200 MG, QD
     Route: 048

REACTIONS (4)
  - GASTRIC CANCER [None]
  - GASTRIC OPERATION [None]
  - GASTROINTESTINAL HAEMORRHAGE [None]
  - MALAISE [None]
